FAERS Safety Report 5391806-3 (Version None)
Quarter: 2007Q3

REPORT INFORMATION
  Report Type: 
  Country: None (occurrence: None)
  Receive Date: 20070717
  Receipt Date: 20070703
  Transmission Date: 20080115
  Serious: Yes (Hospitalization, Other)
  Sender: FDA-Public Use
  Company Number: 02100-JPN-07-0303

PATIENT
  Age: 86 Year
  Sex: Male

DRUGS (9)
  1. CILOSTAZOL [Suspect]
     Indication: LACUNAR INFARCTION
     Dosage: 200 MG; ORAL
     Route: 048
     Dates: start: 20040207
  2. MAGNESIUM OXIDE [Concomitant]
  3. ECABET MONOSODIUM [Concomitant]
  4. ITOPRIDE HYDROCHLORIDE [Concomitant]
  5. NIFEDIPINE [Concomitant]
  6. TAMSULOSIN HCL [Concomitant]
  7. LAFUTIDINE [Concomitant]
  8. HEPARINOID          FROM ANIMAL ORGANS [Concomitant]
  9. FLUOCINOLONE ACETONIDE [Concomitant]

REACTIONS (7)
  - ANAEMIA [None]
  - BLOOD CREATININE INCREASED [None]
  - BLOOD POTASSIUM INCREASED [None]
  - BLOOD UREA INCREASED [None]
  - INTESTINAL FUNCTIONAL DISORDER [None]
  - LARGE INTESTINE CARCINOMA [None]
  - MELAENA [None]
